FAERS Safety Report 14849138 (Version 3)
Quarter: 2019Q2

REPORT INFORMATION
  Report Type: Report from Study
  Country: US (occurrence: US)
  Receive Date: 20180504
  Receipt Date: 20190401
  Transmission Date: 20190711
  Serious: Yes (Hospitalization, Other)
  Sender: FDA-Public Use
  Company Number: US-SA-2018SA094130

PATIENT
  Sex: Female

DRUGS (4)
  1. NAPROXEN. [Concomitant]
     Active Substance: NAPROXEN
     Dosage: UNK UNK,UNK
     Route: 048
  2. ATORVASTATIN [Concomitant]
     Active Substance: ATORVASTATIN
     Dosage: UNK UNK,UNK
     Route: 065
  3. TERIFLUNOMIDE. [Suspect]
     Active Substance: TERIFLUNOMIDE
     Dosage: 14 MG, QD
     Route: 048
     Dates: start: 20180319
  4. METFORMIN HYDROCHLORIDE. [Concomitant]
     Active Substance: METFORMIN HYDROCHLORIDE
     Dosage: UNK UNK,UNK
     Route: 065

REACTIONS (8)
  - Ulcer [Not Recovered/Not Resolved]
  - Blood glucose increased [Not Recovered/Not Resolved]
  - Gait disturbance [Unknown]
  - Back pain [Unknown]
  - Dizziness [Not Recovered/Not Resolved]
  - Death [Fatal]
  - Haematochezia [Not Recovered/Not Resolved]
  - Fall [Unknown]

NARRATIVE: CASE EVENT DATE: 201803
